FAERS Safety Report 18498586 (Version 1)
Quarter: 2020Q4

REPORT INFORMATION
  Report Type: Spontaneous
  Country: HR (occurrence: HR)
  Receive Date: 20201113
  Receipt Date: 20201113
  Transmission Date: 20210114
  Serious: Yes (Hospitalization, Other)
  Sender: FDA-Public Use
  Company Number: HR-SA-2020SA316921

PATIENT

DRUGS (1)
  1. ZOLPIDEM TARTRATE. [Suspect]
     Active Substance: ZOLPIDEM TARTRATE
     Dosage: 4 DF, TOTAL
     Route: 013

REACTIONS (16)
  - Ischaemic limb pain [Recovered/Resolved]
  - Muscle spasms [Recovered/Resolved]
  - Agitation [Recovered/Resolved]
  - Peripheral coldness [Recovered/Resolved]
  - Disseminated intravascular coagulation [Recovered/Resolved]
  - Compartment syndrome [Recovered/Resolved]
  - Blood fibrinogen decreased [Recovered/Resolved]
  - Muscle necrosis [Recovered/Resolved]
  - Myoglobin blood increased [Recovered/Resolved]
  - Platelet count decreased [Recovered/Resolved]
  - Peripheral ischaemia [Recovered/Resolved]
  - Polyuria [Recovered/Resolved]
  - Anxiety [Recovered/Resolved]
  - Pallor [Recovered/Resolved]
  - Pain [Recovered/Resolved]
  - Pain in extremity [Recovered/Resolved]
